FAERS Safety Report 23933858 (Version 1)
Quarter: 2024Q2

REPORT INFORMATION
  Report Type: Other
  Country: US (occurrence: US)
  Receive Date: 20240603
  Receipt Date: 20240603
  Transmission Date: 20240716
  Serious: Yes (Hospitalization)
  Sender: FDA-Public Use
  Company Number: US-HLS-202400151

PATIENT
  Age: 36 Year
  Sex: Male

DRUGS (2)
  1. CLOZAPINE [Suspect]
     Active Substance: CLOZAPINE
     Indication: Schizophrenia
     Route: 065
     Dates: start: 2016
  2. CLOZAPINE [Suspect]
     Active Substance: CLOZAPINE
     Indication: Schizophrenia
     Dosage: DURING THE ICU STAY, THERAPEUTIC DRUG?MONITORING (TDM) OF CLOZAPINE WAS INITIATED / DAILY DOSE OF CL
     Route: 065

REACTIONS (7)
  - Neuroleptic malignant syndrome [Unknown]
  - Confusional state [Unknown]
  - Delusion [Unknown]
  - Aspartate aminotransferase increased [Unknown]
  - Blood creatine phosphokinase increased [Unknown]
  - Hallucination [Unknown]
  - Asthenia [Unknown]
